FAERS Safety Report 14345812 (Version 2)
Quarter: 2018Q1

REPORT INFORMATION
  Report Type: Report from Study
  Country: IE (occurrence: IE)
  Receive Date: 20180103
  Receipt Date: 20180115
  Transmission Date: 20180509
  Serious: Yes (Hospitalization)
  Sender: FDA-Public Use
  Company Number: IE-JNJFOC-20171237014

PATIENT
  Age: 79 Year
  Sex: Male

DRUGS (11)
  1. ZOTON [Concomitant]
     Active Substance: LANSOPRAZOLE
     Route: 050
  2. UROREC [Concomitant]
     Active Substance: SILODOSIN
     Route: 050
  3. BISOPROLOL [Concomitant]
     Active Substance: BISOPROLOL
     Route: 050
  4. LYRICA [Concomitant]
     Active Substance: PREGABALIN
     Route: 050
  5. XANAX [Concomitant]
     Active Substance: ALPRAZOLAM
     Dosage: AS REQUIRED
     Route: 050
  6. MYCOSTATIN [Concomitant]
     Active Substance: NYSTATIN
     Route: 050
  7. ZIMOCLONE [Concomitant]
     Route: 050
  8. DULCOLAX NOS [Concomitant]
     Active Substance: BISACODYL OR DOCUSATE SODIUM
     Route: 050
  9. ZYTIGA [Suspect]
     Active Substance: ABIRATERONE ACETATE
     Indication: PROSTATE CANCER METASTATIC
     Route: 048
     Dates: start: 20171127
  10. PREDNISOLONE. [Concomitant]
     Active Substance: PREDNISOLONE
     Route: 050
  11. XGEVA [Concomitant]
     Active Substance: DENOSUMAB
     Route: 050

REACTIONS (1)
  - Infection [Not Recovered/Not Resolved]

NARRATIVE: CASE EVENT DATE: 20171221
